FAERS Safety Report 9808453 (Version 1)
Quarter: 2014Q1

REPORT INFORMATION
  Report Type: Spontaneous
  Country: GB (occurrence: GB)
  Receive Date: 20140110
  Receipt Date: 20140110
  Transmission Date: 20141002
  Serious: Yes (Hospitalization, Other)
  Sender: FDA-Public Use
  Company Number: GB-ELI_LILLY_AND_COMPANY-GB201401000513

PATIENT
  Sex: Female

DRUGS (6)
  1. GEMCITABINE HYDROCHLORIDE [Suspect]
     Indication: BREAST CANCER
     Dosage: UNK UNK, UNKNOWN
     Route: 042
     Dates: start: 20130830
  2. DENOSUMAB [Suspect]
     Indication: BREAST CANCER
     Dosage: UNK UNK, UNKNOWN
     Route: 065
     Dates: start: 20130830
  3. EPIRUBICIN [Suspect]
     Indication: BREAST CANCER
     Dosage: UNK UNK, UNKNOWN
     Route: 065
     Dates: start: 20130225, end: 20130408
  4. CYCLOPHOSPHAMIDE [Suspect]
     Indication: BREAST CANCER
     Dosage: UNK UNK, OTHER: 3 CYCLES
     Route: 065
     Dates: start: 20130225, end: 20130408
  5. DOCETAXEL [Suspect]
     Indication: BREAST CANCER
     Dosage: UNK UNK, OTHER: 3 CYCLES
     Route: 065
     Dates: start: 20130429, end: 201305
  6. CARBOPLATIN [Suspect]
     Indication: BREAST CANCER
     Dosage: UNK UNK, UNKNOWN
     Route: 042
     Dates: start: 20130830

REACTIONS (8)
  - Hypocalcaemia [Unknown]
  - Diarrhoea [Unknown]
  - Gastrointestinal haemorrhage [Unknown]
  - Vitamin D deficiency [Unknown]
  - Hyperparathyroidism [Unknown]
  - Pleural effusion [Unknown]
  - Metastases to bone marrow [Unknown]
  - Off label use [Unknown]
